FAERS Safety Report 19169955 (Version 2)
Quarter: 2021Q2

REPORT INFORMATION
  Report Type: Spontaneous
  Country: CA (occurrence: CA)
  Receive Date: 20210422
  Receipt Date: 20210423
  Transmission Date: 20210717
  Serious: Yes (Other)
  Sender: FDA-Public Use
  Company Number: CA-PFIZER INC-2021424257

PATIENT
  Age: 47 Year
  Sex: Female

DRUGS (4)
  1. ETANERCEPT [Concomitant]
     Active Substance: ETANERCEPT
     Dosage: 1 DF
     Route: 065
     Dates: start: 2010, end: 20210412
  2. METHOTREXATE SODIUM. [Suspect]
     Active Substance: METHOTREXATE SODIUM
     Dosage: 1 DF
     Route: 065
     Dates: start: 2004, end: 2010
  3. PLAQUENIL S [Suspect]
     Active Substance: HYDROXYCHLOROQUINE SULFATE
     Dosage: UNK
     Dates: start: 2004, end: 2010
  4. ETANERCEPT [Concomitant]
     Active Substance: ETANERCEPT
     Dosage: 1 DF
     Dates: start: 2004, end: 20100412

REACTIONS (3)
  - Myositis [Unknown]
  - Asthenia [Unknown]
  - Drug ineffective [Unknown]
